FAERS Safety Report 16000966 (Version 2)
Quarter: 2019Q1

REPORT INFORMATION
  Report Type: Spontaneous
  Country: US (occurrence: US)
  Receive Date: 20190225
  Receipt Date: 20190304
  Transmission Date: 20190418
  Serious: Yes (Other)
  Sender: FDA-Public Use
  Company Number: US-ASTRAZENECA-2018SF21869

PATIENT
  Sex: Female

DRUGS (11)
  1. NAPROXEN. [Concomitant]
     Active Substance: NAPROXEN
  2. LASIX [Concomitant]
     Active Substance: FUROSEMIDE
  3. LEVOTHYROXINE. [Concomitant]
     Active Substance: LEVOTHYROXINE
  4. NEXIUM [Suspect]
     Active Substance: ESOMEPRAZOLE MAGNESIUM
     Route: 048
     Dates: start: 201605, end: 201612
  5. ROBAXIN [Concomitant]
     Active Substance: METHOCARBAMOL
  6. FLUTICASONE. [Concomitant]
     Active Substance: FLUTICASONE
  7. NEXIUM [Suspect]
     Active Substance: ESOMEPRAZOLE MAGNESIUM
     Route: 048
     Dates: start: 20160502, end: 20161216
  8. PREMARIN [Concomitant]
     Active Substance: ESTROGENS, CONJUGATED
  9. VITAMIN D [Concomitant]
     Active Substance: CHOLECALCIFEROL
  10. ALBUTEROL. [Concomitant]
     Active Substance: ALBUTEROL
  11. TRAMADOL. [Concomitant]
     Active Substance: TRAMADOL

REACTIONS (3)
  - Renal injury [Unknown]
  - Chronic kidney disease [Unknown]
  - Tubulointerstitial nephritis [Unknown]
